FAERS Safety Report 11059993 (Version 2)
Quarter: 2015Q2

REPORT INFORMATION
  Report Type: Spontaneous
  Country: US (occurrence: None)
  Receive Date: 20150422
  Receipt Date: 20150427
  Transmission Date: 20150821
  Serious: Yes (Other)
  Sender: FDA-Public Use
  Company Number: CIO15025002

PATIENT
  Age: 70 Year
  Sex: Female

DRUGS (1)
  1. CREST 3D WHITE GLAMOROUS WHITE [Suspect]
     Active Substance: SODIUM FLUORIDE
     Dosage: INTRAORAL, LENGTH OF THE TOOTHBRUSH HEAD
     Dates: start: 20150408, end: 20150409

REACTIONS (1)
  - Anaphylactic shock [None]

NARRATIVE: CASE EVENT DATE: 201504
